FAERS Safety Report 9762860 (Version 1)
Quarter: 2013Q4

REPORT INFORMATION
  Report Type: Spontaneous
  Country: US (occurrence: US)
  Receive Date: 20131216
  Receipt Date: 20131216
  Transmission Date: 20140711
  Serious: Yes (Hospitalization, Other)
  Sender: FDA-Public Use
  Company Number: US-B.I. PHARMACEUTICALS,INC./RIDGEFIELD-2013-BI-41354BP

PATIENT
  Sex: Male
  Weight: 63 kg

DRUGS (16)
  1. SPIRIVA [Suspect]
     Indication: CHRONIC OBSTRUCTIVE PULMONARY DISEASE
     Dosage: 18 MCG
     Route: 055
  2. SINGULAIR [Concomitant]
     Indication: LUNG DISORDER
     Dosage: 10 MG
     Route: 048
  3. VYTORIN [Concomitant]
     Dosage: STRENGTH: 10-80 MG; DAILY DOSE: 10-80 MG
     Route: 048
  4. PROPRANOLOL ER [Concomitant]
     Indication: CARDIAC DISORDER
     Route: 048
  5. DILTIAZEM [Concomitant]
     Indication: DIURETIC THERAPY
     Dosage: 120 MG
     Route: 048
  6. DIVALPROEX SODIUM [Concomitant]
     Dosage: 22.5 MG
     Route: 048
  7. DEXILANT [Concomitant]
     Dosage: 60 MG
     Route: 048
  8. FUROSEMIDE [Concomitant]
     Dosage: 160 MG
     Route: 048
  9. VENTOLIN HFA [Concomitant]
     Dosage: FORMULATION: INHALATION SOLUTION STRENGTH: 90 MG-18 MG;
     Route: 055
  10. GLUCOPHAGE [Concomitant]
     Indication: BLOOD GLUCOSE ABNORMAL
     Dosage: 1000 MG
     Route: 048
  11. KLOR-CON [Concomitant]
     Route: 048
  12. FLOVENT [Concomitant]
     Indication: LUNG DISORDER
     Dosage: 440 MG
     Route: 055
  13. SEREVENT [Concomitant]
     Indication: LUNG DISORDER
     Dosage: 240 MG
     Route: 055
  14. VITMIN D [Concomitant]
     Dosage: 200 MG
     Route: 048
  15. SSKI [Concomitant]
     Route: 048
  16. CLOPIDOGREL [Concomitant]
     Dosage: 75 MG
     Route: 048

REACTIONS (7)
  - Lung neoplasm malignant [Not Recovered/Not Resolved]
  - Pneumonia [Not Recovered/Not Resolved]
  - Stomatitis [Not Recovered/Not Resolved]
  - Weight decreased [Not Recovered/Not Resolved]
  - Aphagia [Not Recovered/Not Resolved]
  - Abnormal loss of weight [Not Recovered/Not Resolved]
  - Asthenia [Not Recovered/Not Resolved]
